FAERS Safety Report 18371878 (Version 2)
Quarter: 2024Q2

REPORT INFORMATION
  Report Type: Spontaneous
  Country: US (occurrence: US)
  Receive Date: 20201012
  Receipt Date: 20240626
  Transmission Date: 20240715
  Serious: No
  Sender: FDA-Public Use
  Company Number: US-SANOFI-00301531

PATIENT
  Sex: Female

DRUGS (1)
  1. ALLEGRA ALLERGY [Suspect]
     Active Substance: FEXOFENADINE HYDROCHLORIDE
     Indication: Hypersensitivity
     Dosage: 1 DF, QD (DRUG STRUCTURE DOSAGE : 24HR DRUG INTERVAL DOSAGE : 1 TIME DRUG TREATMENT DURATION: 6 WEEK

REACTIONS (1)
  - No adverse event [Unknown]
